FAERS Safety Report 11673293 (Version 3)
Quarter: 2015Q4

REPORT INFORMATION
  Report Type: Report from Study
  Country: US (occurrence: US)
  Receive Date: 20151028
  Receipt Date: 20151123
  Transmission Date: 20160304
  Serious: Yes (Hospitalization, Other)
  Sender: FDA-Public Use
  Company Number: US-AMGEN-USASP2015112183

PATIENT
  Age: 64 Year
  Sex: Male

DRUGS (1)
  1. ENBREL [Suspect]
     Active Substance: ETANERCEPT
     Indication: PSORIATIC ARTHROPATHY
     Dosage: 50 MG, QWK
     Route: 065
     Dates: start: 2012

REACTIONS (20)
  - Injection site haemorrhage [Unknown]
  - Pain [Not Recovered/Not Resolved]
  - Chondropathy [Unknown]
  - Malaise [Unknown]
  - Bone disorder [Unknown]
  - Ill-defined disorder [Unknown]
  - Diabetes mellitus [Unknown]
  - Cardiovascular disorder [Unknown]
  - Sciatica [Not Recovered/Not Resolved]
  - Condition aggravated [Unknown]
  - Skin burning sensation [Not Recovered/Not Resolved]
  - Onychoclasis [Unknown]
  - Rash [Not Recovered/Not Resolved]
  - Hospitalisation [Unknown]
  - Injection site swelling [Unknown]
  - Hypoaesthesia [Unknown]
  - Back disorder [Unknown]
  - Knee operation [Unknown]
  - Foot fracture [Unknown]
  - Musculoskeletal disorder [Unknown]
